FAERS Safety Report 8687514 (Version 3)
Quarter: 2015Q1

REPORT INFORMATION
  Report Type: Spontaneous
  Country: JP (occurrence: JP)
  Receive Date: 20120727
  Receipt Date: 20150324
  Transmission Date: 20150721
  Serious: Yes (Other)
  Sender: FDA-Public Use
  Company Number: JP-PFIZER INC-2012165513

PATIENT
  Age: 61 Year
  Sex: Male

DRUGS (6)
  1. ZOMETA [Concomitant]
     Active Substance: ZOLEDRONIC ACID
  2. LOXONIN [Concomitant]
     Active Substance: LOXOPROFEN SODIUM
  3. ASPARA-CA [Concomitant]
     Active Substance: CALCIUM ASPARTATE
  4. SUTENT [Suspect]
     Active Substance: SUNITINIB MALATE
     Dosage: 25 MG, 1X/DAY (3RD COURSE)
     Route: 048
  5. SUTENT [Suspect]
     Active Substance: SUNITINIB MALATE
     Indication: RENAL CELL CARCINOMA
     Dosage: 50 MG, 1X/DAY (1ST AND 2ND COURSES)
     Route: 048
     Dates: start: 20110519, end: 20130315
  6. SUTENT [Suspect]
     Active Substance: SUNITINIB MALATE
     Dosage: 37.5 MG/DAY OR 25 MG/DAY ON AN ALTERNATE-DAY BASIS
     Route: 048

REACTIONS (4)
  - Hypertension [Recovering/Resolving]
  - Pleural effusion [Unknown]
  - Proteinuria [Unknown]
  - Nephrotic syndrome [Unknown]
